FAERS Safety Report 16036191 (Version 1)
Quarter: 2019Q1

REPORT INFORMATION
  Report Type: Spontaneous
  Country: US (occurrence: US)
  Receive Date: 20190305
  Receipt Date: 20190305
  Transmission Date: 20190418
  Serious: No
  Sender: FDA-Public Use
  Company Number: US-ALLERGAN-1816519US

PATIENT
  Age: 47 Year
  Sex: Female

DRUGS (2)
  1. ESTRACE [Suspect]
     Active Substance: ESTRADIOL
     Dosage: UNK
     Route: 067
     Dates: start: 20180212
  2. ESTRACE [Suspect]
     Active Substance: ESTRADIOL
     Indication: VULVOVAGINAL DRYNESS
     Dosage: 1/2 APPLICATOR ONCE A DAY AT BEDTIME
     Route: 067
     Dates: start: 20180205, end: 20180208

REACTIONS (5)
  - Acne [Unknown]
  - Uterine tenderness [Unknown]
  - Limb discomfort [Not Recovered/Not Resolved]
  - Muscle spasms [Recovered/Resolved]
  - Dysmenorrhoea [Recovered/Resolved]

NARRATIVE: CASE EVENT DATE: 20180207
